FAERS Safety Report 5020067-X (Version None)
Quarter: 2006Q2

REPORT INFORMATION
  Report Type: 
  Country: None (occurrence: None)
  Receive Date: 20060607
  Receipt Date: 20060523
  Transmission Date: 20061013
  Serious: Yes (Death, Hospitalization)
  Sender: FDA-Public Use
  Company Number: ZA-GLAXOSMITHKLINE-B0425775A

PATIENT
  Age: 49 Day
  Sex: Male
  Weight: 3.6 kg

DRUGS (9)
  1. ZIDOVUDINE [Suspect]
     Indication: HIV INFECTION
     Dosage: 60MG TWICE PER DAY
     Route: 048
     Dates: start: 20060516, end: 20060522
  2. LAMIVUDINE [Suspect]
     Indication: HIV INFECTION
     Dosage: 15MG TWICE PER DAY
     Route: 048
     Dates: start: 20060516, end: 20060522
  3. KALETRA [Suspect]
     Indication: HIV INFECTION
     Dosage: .9ML TWICE PER DAY
     Route: 048
     Dates: start: 20060516, end: 20060522
  4. PREVNAR [Concomitant]
     Dosage: .5ML PER DAY
     Dates: start: 20060516
  5. BACTRIM [Concomitant]
  6. IRON SUPPLEMENT [Concomitant]
  7. HYDROCORTISONE [Concomitant]
  8. ZINC + CASTOR OIL TREATMENT [Concomitant]
  9. AQUEOUS CREAM [Concomitant]

REACTIONS (8)
  - ANAEMIA [None]
  - DEATH [None]
  - DIARRHOEA [None]
  - GASTROENTERITIS [None]
  - HYPOKALAEMIA [None]
  - NEUTROPENIA [None]
  - SEPSIS [None]
  - VOMITING [None]
